FAERS Safety Report 17464669 (Version 3)
Quarter: 2020Q2

REPORT INFORMATION
  Report Type: Spontaneous
  Country: BE (occurrence: BE)
  Receive Date: 20200226
  Receipt Date: 20200401
  Transmission Date: 20200713
  Serious: Yes (Hospitalization)
  Sender: FDA-Public Use
  Company Number: BE-PFIZER INC-2020081422

PATIENT
  Age: 46 Year
  Sex: Female
  Weight: 85 kg

DRUGS (3)
  1. SOMAVERT [Suspect]
     Active Substance: PEGVISOMANT
     Dosage: 30 MG, 1X/DAY
     Route: 058
     Dates: start: 20190805
  2. ANGELIQ [Concomitant]
     Active Substance: DROSPIRENONE\ESTRADIOL
     Indication: HYPOGONADISM
     Route: 048
  3. SOMATULIN [Concomitant]
     Active Substance: LANREOTIDE ACETATE
     Indication: ACROMEGALY
     Dosage: 20 UG, UNK
     Route: 058
     Dates: start: 20180831

REACTIONS (1)
  - Neoplasm progression [Not Recovered/Not Resolved]

NARRATIVE: CASE EVENT DATE: 20191211
